FAERS Safety Report 19131307 (Version 1)
Quarter: 2021Q2

REPORT INFORMATION
  Report Type: Spontaneous
  Country: US (occurrence: US)
  Receive Date: 20210414
  Receipt Date: 20210414
  Transmission Date: 20210717
  Serious: No
  Sender: FDA-Public Use
  Company Number: US-BIOGEN-2021BI01000431

PATIENT
  Sex: Female

DRUGS (1)
  1. TECFIDERA [Suspect]
     Active Substance: DIMETHYL FUMARATE
     Indication: PRODUCT USED FOR UNKNOWN INDICATION
     Dosage: 480MG
     Route: 048
     Dates: start: 202012

REACTIONS (11)
  - Asthenia [Unknown]
  - Diarrhoea [Unknown]
  - Sensation of foreign body [Unknown]
  - Fatigue [Unknown]
  - Hot flush [Unknown]
  - Dizziness [Unknown]
  - Feeling abnormal [Unknown]
  - Gastrooesophageal reflux disease [Unknown]
  - Back pain [Unknown]
  - Eructation [Unknown]
  - Nausea [Unknown]
